FAERS Safety Report 25007090 (Version 1)
Quarter: 2025Q1

REPORT INFORMATION
  Report Type: Spontaneous
  Country: US (occurrence: US)
  Receive Date: 20250225
  Receipt Date: 20250225
  Transmission Date: 20250409
  Serious: Yes (Other)
  Sender: SANDOZ
  Company Number: US-SANDOZ-SDZ2025US010470

PATIENT
  Sex: Male

DRUGS (1)
  1. OMNITROPE [Suspect]
     Active Substance: SOMATROPIN
     Indication: Hypopituitarism
     Dosage: 3 MG 2 DOSE EVERY, 10 MG/1.5 ML SOLUTION FOR INJECTION IN CARTRIDGE
     Route: 058

REACTIONS (2)
  - Hypothyroidism [Unknown]
  - Sleep disorder [Unknown]
